FAERS Safety Report 14718468 (Version 1)
Quarter: 2018Q2

REPORT INFORMATION
  Report Type: Spontaneous
  Country: KR (occurrence: KR)
  Receive Date: 20180404
  Receipt Date: 20180404
  Transmission Date: 20180711
  Serious: Yes (Death, Life-Threatening, Other)
  Sender: FDA-Public Use
  Company Number: PHHY2018KR051009

PATIENT
  Sex: Male

DRUGS (3)
  1. GRANULOCYTE COLONY STIMULATING FACTOR [Suspect]
     Active Substance: GRANULOCYTE COLONY-STIMULATING FACTOR NOS
     Indication: ACUTE LYMPHOCYTIC LEUKAEMIA
     Dosage: 10 UG/KG, UNK
     Route: 065
  2. ETOPOSIDE. [Suspect]
     Active Substance: ETOPOSIDE
     Indication: ACUTE LYMPHOCYTIC LEUKAEMIA
     Dosage: 70 MG/M2, UNK
     Route: 065
  3. CYTARABINE. [Suspect]
     Active Substance: CYTARABINE
     Indication: ACUTE LYMPHOCYTIC LEUKAEMIA
     Dosage: 3000 MG/M2, Q12H
     Route: 065

REACTIONS (7)
  - Acute lymphocytic leukaemia [Fatal]
  - Sepsis [Recovered/Resolved]
  - Platelet count decreased [Unknown]
  - Neutrophil count decreased [Unknown]
  - Febrile neutropenia [Unknown]
  - Aspartate aminotransferase increased [Unknown]
  - Alanine aminotransferase increased [Unknown]
